FAERS Safety Report 10276093 (Version 1)
Quarter: 2014Q3

REPORT INFORMATION
  Report Type: Other
  Country: GB (occurrence: GB)
  Receive Date: 20140703
  Receipt Date: 20140703
  Transmission Date: 20150326
  Serious: Yes (Hospitalization, Other)
  Sender: FDA-Public Use
  Company Number: GB-TARO PHARMACEUTICALS U.S.A., INC-2014SUN01462

PATIENT

DRUGS (7)
  1. WARFARIN [Suspect]
     Active Substance: WARFARIN
     Indication: PRODUCT USED FOR UNKNOWN INDICATION
     Dosage: 10 MG, DAILY
     Route: 065
  2. LISINOPRIL. [Concomitant]
     Active Substance: LISINOPRIL
     Indication: BLOOD PRESSURE ABNORMAL
     Dosage: UNK
     Route: 065
  3. STATINS [Interacting]
     Active Substance: UNSPECIFIED INGREDIENT
     Indication: PRODUCT USED FOR UNKNOWN INDICATION
     Dosage: UNK
     Route: 065
  4. DUTASTERIDE [Concomitant]
     Active Substance: DUTASTERIDE
     Indication: BLADDER DISORDER
     Dosage: UNK
     Route: 065
  5. BISOPROLOL [Concomitant]
     Active Substance: BISOPROLOL
     Indication: HEART RATE ABNORMAL
     Dosage: UNK
     Route: 065
  6. DAKTARIN [Suspect]
     Active Substance: MICONAZOLE NITRATE
     Indication: CANDIDA INFECTION
     Dosage: 5 ML, TID
     Route: 048
     Dates: start: 20140531
  7. ASACOL [Concomitant]
     Active Substance: MESALAMINE
     Indication: COLITIS
     Dosage: UNK
     Route: 065

REACTIONS (5)
  - Peripheral swelling [Unknown]
  - Drug interaction [Unknown]
  - Erythema [Unknown]
  - International normalised ratio increased [Recovering/Resolving]
  - Foreign body [Unknown]

NARRATIVE: CASE EVENT DATE: 2014
